FAERS Safety Report 5124632-0 (Version None)
Quarter: 2006Q4

REPORT INFORMATION
  Report Type: 
  Country: None (occurrence: None)
  Receive Date: 20061011
  Receipt Date: 20061003
  Transmission Date: 20070319
  Serious: Yes (Congenital Anomaly, Other)
  Sender: FDA-Public Use
  Company Number: FR-BRISTOL-MYERS SQUIBB COMPANY-13532163

PATIENT
  Sex: Female

DRUGS (5)
  1. PRAVASTATIN [Suspect]
     Route: 048
  2. CORTANCYL [Suspect]
     Route: 048
  3. IMUREL [Suspect]
     Route: 048
  4. PROGRAF [Suspect]
     Route: 048
  5. PANTOPRAZOLE SODIUM [Suspect]
     Route: 048

REACTIONS (2)
  - ABORTION INDUCED [None]
  - MULTIPLE CONGENITAL ABNORMALITIES [None]
